FAERS Safety Report 18637647 (Version 2)
Quarter: 2021Q1

REPORT INFORMATION
  Report Type: Report from Study
  Country: US (occurrence: US)
  Receive Date: 20201218
  Receipt Date: 20210111
  Transmission Date: 20210419
  Serious: Yes (Hospitalization)
  Sender: FDA-Public Use
  Company Number: NVSC2020US336567

PATIENT
  Age: 60 Year
  Sex: Female

DRUGS (1)
  1. ENTRESTO [Suspect]
     Active Substance: SACUBITRIL\VALSARTAN
     Indication: PRODUCT USED FOR UNKNOWN INDICATION
     Dosage: 100 MG/G, BID (49/51 MG)
     Route: 048
     Dates: start: 20201124

REACTIONS (5)
  - Dyspnoea [Unknown]
  - Fall [Unknown]
  - Pulmonary oedema [Unknown]
  - Hypotension [Unknown]
  - Limb injury [Unknown]

NARRATIVE: CASE EVENT DATE: 20201206
